FAERS Safety Report 18181691 (Version 1)
Quarter: 2020Q3

REPORT INFORMATION
  Report Type: Spontaneous
  Country: DE (occurrence: DE)
  Receive Date: 20200821
  Receipt Date: 20200821
  Transmission Date: 20201103
  Serious: Yes (Other)
  Sender: FDA-Public Use
  Company Number: DE-TEVA-2020-DE-1815741

PATIENT
  Age: 22 Year
  Sex: Female
  Weight: 122 kg

DRUGS (2)
  1. SERTRALIN [Concomitant]
     Active Substance: SERTRALINE HYDROCHLORIDE
     Indication: DEPRESSION
     Dosage: 150MG
     Route: 048
     Dates: start: 202001
  2. DOXYCYCLIN [Suspect]
     Active Substance: DOXYCYCLINE
     Indication: PHARYNGITIS
     Dosage: 200MG, END DATE: 20200806
     Route: 048
     Dates: start: 20200728

REACTIONS (1)
  - Vulvovaginal injury [Unknown]
